FAERS Safety Report 7114286-6 (Version None)
Quarter: 2010Q4

REPORT INFORMATION
  Report Type: 
  Country: None (occurrence: None)
  Receive Date: 20101119
  Receipt Date: 20101115
  Transmission Date: 20110411
  Serious: Yes (Hospitalization)
  Sender: FDA-Public Use
  Company Number: CHPA2010US16963

PATIENT
  Sex: Male

DRUGS (1)
  1. TRANSDERM SCOP [Suspect]
     Indication: SALIVARY HYPERSECRETION
     Dosage: 1 DF, ONCE/SINGLE
     Route: 062
     Dates: start: 20101022, end: 20101023

REACTIONS (8)
  - ABASIA [None]
  - APHASIA [None]
  - COORDINATION ABNORMAL [None]
  - DRUG INEFFECTIVE FOR UNAPPROVED INDICATION [None]
  - MOVEMENT DISORDER [None]
  - PARALYSIS [None]
  - PNEUMONIA [None]
  - UNRESPONSIVE TO STIMULI [None]
